FAERS Safety Report 4654765-4 (Version None)
Quarter: 2005Q2

REPORT INFORMATION
  Report Type: 
  Country: None (occurrence: None)
  Receive Date: 20050504
  Receipt Date: 20050418
  Transmission Date: 20051028
  Serious: Yes (Death)
  Sender: FDA-Public Use
  Company Number: 2005EU000784

PATIENT
  Age: 48 Year
  Sex: Male

DRUGS (2)
  1. FK506(TACROLIMUS) [Suspect]
     Indication: RENAL TRANSPLANT
     Dosage: 6.00 MG BID
  2. MYCOPHENOLATE MOFETIL [Concomitant]

REACTIONS (6)
  - ABDOMINAL MASS [None]
  - ASPERGILLOSIS [None]
  - PNEUMONIA [None]
  - POSTOPERATIVE INFECTION [None]
  - PSEUDOMONAS INFECTION [None]
  - SEPTIC SHOCK [None]
